FAERS Safety Report 20802576 (Version 1)
Quarter: 2022Q2

REPORT INFORMATION
  Report Type: Spontaneous
  Country: US (occurrence: None)
  Receive Date: 20220509
  Receipt Date: 20220509
  Transmission Date: 20220721
  Serious: Yes (Hospitalization)
  Sender: FDA-Public Use
  Company Number: None

PATIENT
  Age: 75 Year
  Sex: Male

DRUGS (22)
  1. EVUSHELD [Suspect]
     Active Substance: CILGAVIMAB\TIXAGEVIMAB
     Indication: COVID-19
     Dates: start: 20220422
  2. Atorvasatin [Concomitant]
  3. PREDNISONE [Concomitant]
     Active Substance: PREDNISONE
  4. DAPAGLIFLOZIN [Concomitant]
     Active Substance: DAPAGLIFLOZIN
  5. PAROXETINE [Concomitant]
     Active Substance: PAROXETINE
  6. OMEPRAZOLE [Concomitant]
     Active Substance: OMEPRAZOLE
  7. MYCOPHENOLATE SODIUM [Concomitant]
     Active Substance: MYCOPHENOLATE SODIUM
  8. BACLOFEN [Concomitant]
     Active Substance: BACLOFEN
  9. KETOCONAZOLE [Concomitant]
     Active Substance: KETOCONAZOLE
  10. Econazole 1% Cream [Concomitant]
  11. FUROSEMIDE [Concomitant]
     Active Substance: FUROSEMIDE
  12. FEBUXOSTAT [Concomitant]
     Active Substance: FEBUXOSTAT
  13. LISINOPRIL [Concomitant]
     Active Substance: LISINOPRIL
  14. TETRAFERRIC TRICITRATE DECAHYDRATE [Concomitant]
     Active Substance: TETRAFERRIC TRICITRATE DECAHYDRATE
  15. ASPIRIN [Concomitant]
     Active Substance: ASPIRIN
  16. NaCl 0.65% solution [Concomitant]
  17. CARVEDILOL [Concomitant]
     Active Substance: CARVEDILOL
  18. BACTRIM [Concomitant]
     Active Substance: SULFAMETHOXAZOLE\TRIMETHOPRIM
  19. FLUOROURACIL [Concomitant]
     Active Substance: FLUOROURACIL
  20. MIRABEGRON [Concomitant]
     Active Substance: MIRABEGRON
  21. Glucose tab [Concomitant]
  22. Fluorouracil 5% Cream + Calcipotriene 0.005% Cream [Concomitant]

REACTIONS (5)
  - Fatigue [None]
  - Asthenia [None]
  - Myalgia [None]
  - Hypotension [None]
  - Leukocytosis [None]

NARRATIVE: CASE EVENT DATE: 20220424
